FAERS Safety Report 5267708-X (Version None)
Quarter: 2007Q1

REPORT INFORMATION
  Report Type: 
  Country: None (occurrence: None)
  Receive Date: 20070316
  Receipt Date: 20070305
  Transmission Date: 20070707
  Serious: Yes (Death, Disabling, Other)
  Sender: FDA-Public Use
  Company Number: US-PFIZER INC-2006153629

PATIENT
  Sex: Female
  Weight: 81.6 kg

DRUGS (4)
  1. NEURONTIN [Suspect]
     Indication: PAIN
  2. SOMA [Concomitant]
     Indication: MUSCLE SPASMS
  3. LIDODERM PATCH [Concomitant]
     Indication: PAIN
  4. METHADONE HCL [Concomitant]
     Indication: PAIN

REACTIONS (13)
  - ANXIETY [None]
  - COMPLETED SUICIDE [None]
  - DECREASED ACTIVITY [None]
  - DECREASED APPETITE [None]
  - DEPRESSED MOOD [None]
  - DISTRACTIBILITY [None]
  - DRUG INEFFECTIVE [None]
  - INJURY [None]
  - IRRITABILITY [None]
  - NAUSEA [None]
  - ROAD TRAFFIC ACCIDENT [None]
  - SLEEP DISORDER [None]
  - SUICIDAL IDEATION [None]
